FAERS Safety Report 4355701-0 (Version None)
Quarter: 2004Q2

REPORT INFORMATION
  Report Type: 
  Country: None (occurrence: None)
  Receive Date: 20040505
  Receipt Date: 20040423
  Transmission Date: 20050107
  Serious: Yes (Death)
  Sender: FDA-Public Use
  Company Number: 163-20785-03010223

PATIENT
  Age: 42 Year
  Sex: Male

DRUGS (1)
  1. THALOMID [Suspect]
     Indication: GRAFT VERSUS HOST DISEASE
     Dosage: 200 MG, QD, ORAL
     Route: 048
     Dates: start: 20021205, end: 20030101

REACTIONS (4)
  - DISEASE PROGRESSION [None]
  - FUNGAL INFECTION [None]
  - GRAFT VERSUS HOST DISEASE [None]
  - VIRAL INFECTION [None]
